FAERS Safety Report 12381059 (Version 1)
Quarter: 2016Q2

REPORT INFORMATION
  Report Type: Spontaneous
  Country: US (occurrence: None)
  Receive Date: 20160517
  Receipt Date: 20160517
  Transmission Date: 20160815
  Serious: Yes (Other)
  Sender: FDA-Public Use
  Company Number: None

PATIENT
  Age: 80 Year
  Sex: Male
  Weight: 117.94 kg

DRUGS (6)
  1. VITAMIN D [Concomitant]
     Active Substance: CHOLECALCIFEROL
  2. CELECOXIB 200 MG GREENSTONE 11C [Suspect]
     Active Substance: CELECOXIB
     Indication: KNEE ARTHROPLASTY
     Route: 048
     Dates: start: 20160414, end: 20160425
  3. MULTI VIT [Concomitant]
  4. EYE DROPS [Concomitant]
     Active Substance: TETRAHYDROZOLINE HYDROCHLORIDE
  5. OMEGA XL (FISH OIL) [Concomitant]
  6. GEMFIBROZIL. [Concomitant]
     Active Substance: GEMFIBROZIL

REACTIONS (1)
  - Rash [None]

NARRATIVE: CASE EVENT DATE: 20160419
